FAERS Safety Report 5512797-8 (Version None)
Quarter: 2007Q4

REPORT INFORMATION
  Report Type: 
  Country: None (occurrence: None)
  Receive Date: 20071108
  Receipt Date: 20071029
  Transmission Date: 20080405
  Serious: Yes (Hospitalization, Other)
  Sender: FDA-Public Use
  Company Number: 100#01#2007-03606

PATIENT
  Age: 7 Year
  Sex: Female

DRUGS (4)
  1. SUMAMED FORTE (AZITHROMYCIN) (AZITHROMYCIN) [Suspect]
     Indication: ACUTE TONSILLITIS
     Dosage: 10MG/KG ONCE DAILY ORAL
     Route: 048
     Dates: start: 20070913, end: 20070914
  2. ANAFERON (ANAFERON) [Concomitant]
  3. ZYRTEC [Suspect]
  4. LINEX (LACTOBACILLUS ACIDOPHILUS) (LACTOBACILLUS ACIDOPHILUS) [Concomitant]

REACTIONS (2)
  - EYELID OEDEMA [None]
  - INFECTIOUS MONONUCLEOSIS [None]
